FAERS Safety Report 9181248 (Version 1)
Quarter: 2013Q1

REPORT INFORMATION
  Report Type: Spontaneous
  Country: US (occurrence: None)
  Receive Date: 20130320
  Receipt Date: 20130320
  Transmission Date: 20140127
  Serious: Yes (Death)
  Sender: FDA-Public Use
  Company Number: SYM-2013-01734

PATIENT
  Sex: 0

DRUGS (3)
  1. FLUOROURACIL [Suspect]
     Indication: HEAD AND NECK CANCER
     Dosage: EVERY CYCLE
     Route: 042
  2. CETUXIMAB [Suspect]
     Indication: HEAD AND NECK CANCER
     Dosage: EVERY CYCLE
     Route: 042
  3. OXALIPLATIN [Suspect]
     Indication: HEAD AND NECK CANCER
     Dosage: EVERY CYCLE

REACTIONS (1)
  - Death [None]
